FAERS Safety Report 6329545-4 (Version None)
Quarter: 2009Q3

REPORT INFORMATION
  Report Type: 
  Country: None (occurrence: None)
  Receive Date: 20090825
  Receipt Date: 20090825
  Transmission Date: 20100115
  Serious: Yes (Other)
  Sender: FDA-Public Use
  Company Number: None

PATIENT
  Sex: Male
  Weight: 95.2554 kg

DRUGS (2)
  1. GLEEVEC [Suspect]
     Indication: CHRONIC MYELOID LEUKAEMIA
     Dosage: 400 ONCE DAILY PO STILL TAKING IT
     Route: 048
     Dates: start: 20070615, end: 20090824
  2. GLEEVEC [Concomitant]

REACTIONS (4)
  - AMYOTROPHIC LATERAL SCLEROSIS [None]
  - DYSPHAGIA [None]
  - RASH [None]
  - SPEECH DISORDER [None]
